FAERS Safety Report 8276684-7 (Version None)
Quarter: 2012Q2

REPORT INFORMATION
  Report Type: 
  Country: None (occurrence: None)
  Receive Date: 20120412
  Receipt Date: 20120402
  Transmission Date: 20120825
  Serious: Yes (Other)
  Sender: FDA-Public Use
  Company Number: FR-EISAI INC-E7273-00299-SPO-FR

PATIENT
  Age: 66 Year
  Sex: Female

DRUGS (7)
  1. ALEMTUZUMAB [Suspect]
     Dosage: UNKNOWN
     Route: 058
     Dates: start: 20100701, end: 20100701
  2. TARGRETIN [Suspect]
     Dosage: UNKNOWN
     Route: 048
     Dates: start: 20060101
  3. CHLORAMBUCIL [Suspect]
     Dosage: UNKNOWN
     Route: 065
     Dates: start: 20060101
  4. METHOTREXATE [Suspect]
     Dosage: UNKNOWN
     Route: 065
     Dates: start: 20060101
  5. ALEMTUZUMAB [Suspect]
     Dosage: UNKNOWN
     Route: 058
     Dates: start: 20110401, end: 20110401
  6. INTERFERON [Suspect]
     Dosage: UNKNOWN
     Route: 065
     Dates: start: 20060101
  7. ALEMTUZUMAB [Suspect]
     Dosage: UNKNOWN
     Route: 058
     Dates: start: 20090301, end: 20090301

REACTIONS (1)
  - PNEUMONIA CRYPTOCOCCAL [None]
